FAERS Safety Report 6501746-1 (Version None)
Quarter: 2009Q4

REPORT INFORMATION
  Report Type: 
  Country: None (occurrence: None)
  Receive Date: 20091207
  Receipt Date: 20091201
  Transmission Date: 20100525
  Serious: Yes (Other)
  Sender: FDA-Public Use
  Company Number: A0832805A

PATIENT
  Age: 49 Year
  Sex: Female

DRUGS (1)
  1. UREA PEROXIDE [Suspect]
     Indication: DRUG USE FOR UNKNOWN INDICATION
     Dosage: AURAL
     Dates: start: 20090301

REACTIONS (2)
  - DEAFNESS [None]
  - TINNITUS [None]
